FAERS Safety Report 8422232-8 (Version None)
Quarter: 2012Q2

REPORT INFORMATION
  Report Type: 
  Country: None (occurrence: None)
  Receive Date: 20120608
  Receipt Date: 20120528
  Transmission Date: 20120825
  Serious: Yes (Death, Other)
  Sender: FDA-Public Use
  Company Number: DE-TEVA-340532GER

PATIENT
  Age: 54 Year
  Sex: Male

DRUGS (10)
  1. BORTEZOMIB [Suspect]
     Indication: PLASMABLASTIC LYMPHOMA
     Dosage: 1.3 MG/M2, D1, 4, 8, 11 OF 22D CYCLE
     Route: 065
  2. BLEOMYCIN SULFATE [Suspect]
     Indication: PLASMABLASTIC LYMPHOMA
     Dosage: ON D8; PART OF BEACOOP ESC CHEMOTHERAPY
     Route: 065
  3. PREDNISOLONE [Suspect]
     Indication: PLASMABLASTIC LYMPHOMA
     Dosage: 40 MG/M2, D1-14 OF 22D CYCLE; PART OF BEACOOP ESC CHEMOTHERAPY
     Route: 065
  4. DEXAMETHASONE [Suspect]
     Indication: PLASMABLASTIC LYMPHOMA
     Dosage: 20MG, D1, 2, 4, 5, 8, 9, 11, 12 OF 22D CYCLE
     Route: 065
  5. SIROLIMUS [Suspect]
     Indication: IMMUNOSUPPRESSANT DRUG THERAPY
     Dosage: 1.5 MILLIGRAM;
     Route: 065
  6. PROCARBAZINE HYDROCHLORIDE [Suspect]
     Indication: PLASMABLASTIC LYMPHOMA
     Dosage: 100 MG/M2, D1-7 OF 22D CYCLE; PART OF BEACOOP ESC CHEMOTHERAPY
     Route: 065
  7. ETOPOSIDE [Suspect]
     Indication: PLASMABLASTIC LYMPHOMA
     Dosage: 200 MG/M2, D1-3 OF 22D CYCLE; PART OF BEACOOP ESC CHEMOTHERAPY
     Route: 065
  8. CYCLOSPORINE [Suspect]
     Indication: IMMUNOSUPPRESSANT DRUG THERAPY
     Dosage: 45 MILLIGRAM;
     Route: 065
  9. CYCLOPHOSPHAMIDE [Suspect]
     Indication: PLASMABLASTIC LYMPHOMA
     Dosage: ON D1; PART OF BEACOOP ESC CHEMOTHERAPY
     Route: 065
  10. PREDNISOLONE [Suspect]
     Indication: IMMUNOSUPPRESSANT DRUG THERAPY
     Dosage: 5 MILLIGRAM;
     Route: 065

REACTIONS (5)
  - CYTOMEGALOVIRUS CHORIORETINITIS [None]
  - PLASMABLASTIC LYMPHOMA [None]
  - NEUTROPENIA [None]
  - POST TRANSPLANT LYMPHOPROLIFERATIVE DISORDER [None]
  - BRONCHOPULMONARY ASPERGILLOSIS [None]
